FAERS Safety Report 25554827 (Version 1)
Quarter: 2025Q3

REPORT INFORMATION
  Report Type: Report from Study
  Country: GB (occurrence: GB)
  Receive Date: 20250715
  Receipt Date: 20250715
  Transmission Date: 20251020
  Serious: Yes (Hospitalization, Other)
  Sender: TAKEDA
  Company Number: GB-TAKEDA-2024TUS051872

PATIENT
  Sex: Female

DRUGS (2)
  1. VEDOLIZUMAB [Suspect]
     Active Substance: VEDOLIZUMAB
     Indication: Crohn^s disease
     Dosage: 108 MILLIGRAM, Q2WEEKS
  2. VEDOLIZUMAB [Suspect]
     Active Substance: VEDOLIZUMAB

REACTIONS (8)
  - Traumatic lung injury [Unknown]
  - Upper limb fracture [Unknown]
  - Rib fracture [Unknown]
  - Diabetes mellitus [Unknown]
  - Fall [Unknown]
  - Patella fracture [Unknown]
  - Wrist fracture [Unknown]
  - Feeling cold [Unknown]
